FAERS Safety Report 8491693-0 (Version None)
Quarter: 2012Q3

REPORT INFORMATION
  Report Type: 
  Country: None (occurrence: None)
  Receive Date: 20120706
  Receipt Date: 20120628
  Transmission Date: 20120928
  Serious: Yes (Other)
  Sender: FDA-Public Use
  Company Number: JP-JNJFOC-20120700200

PATIENT
  Sex: Male
  Weight: 67 kg

DRUGS (5)
  1. METHOTREXATE [Concomitant]
     Indication: RHEUMATOID ARTHRITIS
     Route: 065
  2. NORVASC [Concomitant]
     Route: 048
  3. SIMPONI [Suspect]
     Indication: RHEUMATOID ARTHRITIS
     Route: 058
     Dates: start: 20111122
  4. VITAMIN B12 [Concomitant]
     Route: 065
  5. FOLIC ACID [Concomitant]
     Indication: PROPHYLAXIS
     Route: 065

REACTIONS (2)
  - CELL MARKER INCREASED [None]
  - LUNG NEOPLASM MALIGNANT [None]
